FAERS Safety Report 18501517 (Version 1)
Quarter: 2020Q4

REPORT INFORMATION
  Report Type: Spontaneous
  Country: CA (occurrence: CA)
  Receive Date: 20201113
  Receipt Date: 20201113
  Transmission Date: 20210114
  Serious: Yes (Death)
  Sender: FDA-Public Use
  Company Number: CA-PFIZER INC-2020212493

PATIENT
  Age: 74 Year
  Sex: Female

DRUGS (3)
  1. IBRANCE [Suspect]
     Active Substance: PALBOCICLIB
     Indication: BREAST CANCER METASTATIC
     Dosage: 125 MG, CYCLIC (TAKE 1 CAPSULE DAILY X 21 DAYS THEN OFF X 7 DAYS)
     Route: 048
     Dates: start: 20201023
  2. FULVESTRANT. [Concomitant]
     Active Substance: FULVESTRANT
     Dosage: 500 MG (INJECT 2 X 250MG EVERY 2 WEEKS X 3 DOSES THEN EVERY 4 WEEKS THEREAFTER)
     Route: 030
     Dates: start: 20201023
  3. GEMCITABINE. [Concomitant]
     Active Substance: GEMCITABINE
     Dosage: UNK

REACTIONS (1)
  - Death [Fatal]
